FAERS Safety Report 13045495 (Version 1)
Quarter: 2016Q4

REPORT INFORMATION
  Report Type: Spontaneous
  Country: US (occurrence: US)
  Receive Date: 20161220
  Receipt Date: 20161220
  Transmission Date: 20170207
  Serious: Yes (Hospitalization)
  Sender: FDA-Public Use
  Company Number: None

PATIENT
  Age: 55 Year
  Sex: Male
  Weight: 66.5 kg

DRUGS (2)
  1. CARBOPLATIN. [Suspect]
     Active Substance: CARBOPLATIN
     Dates: end: 20161110
  2. TAXOL [Suspect]
     Active Substance: PACLITAXEL
     Dates: end: 20161110

REACTIONS (6)
  - Dysphagia [None]
  - Thrombocytopenia [None]
  - Odynophagia [None]
  - Nausea [None]
  - Epistaxis [None]
  - Vomiting [None]

NARRATIVE: CASE EVENT DATE: 20161214
